FAERS Safety Report 15207753 (Version 1)
Quarter: 2018Q3

REPORT INFORMATION
  Report Type: Spontaneous
  Country: US (occurrence: US)
  Receive Date: 20180727
  Receipt Date: 20180727
  Transmission Date: 20181010
  Serious: No
  Sender: FDA-Public Use
  Company Number: US-ALLERGAN-1769524US

PATIENT
  Age: 62 Year
  Sex: Male
  Weight: 83.45 kg

DRUGS (2)
  1. ANDRODERM [Suspect]
     Active Substance: TESTOSTERONE
     Dosage: UNK
  2. ANDRODERM [Suspect]
     Active Substance: TESTOSTERONE
     Indication: BLOOD TESTOSTERONE DECREASED
     Dosage: 2MG PATCH EVERY NIGHT
     Route: 062
     Dates: start: 201710

REACTIONS (3)
  - Wrong technique in product usage process [Unknown]
  - Drug ineffective [Unknown]
  - Product packaging issue [Unknown]

NARRATIVE: CASE EVENT DATE: 201710
